FAERS Safety Report 7893745-2 (Version None)
Quarter: 2011Q4

REPORT INFORMATION
  Report Type: 
  Country: None (occurrence: None)
  Receive Date: 20111104
  Receipt Date: 20111025
  Transmission Date: 20120403
  Serious: Yes (Hospitalization)
  Sender: FDA-Public Use
  Company Number: PHHY2011FR96766

PATIENT
  Sex: Male

DRUGS (1)
  1. OMNITROPE [Suspect]
     Dosage: 3.3 MG/ML, UNK

REACTIONS (1)
  - EPILEPSY [None]
